FAERS Safety Report 17640525 (Version 10)
Quarter: 2023Q4

REPORT INFORMATION
  Report Type: Spontaneous
  Country: DE (occurrence: DE)
  Receive Date: 20200408
  Receipt Date: 20231108
  Transmission Date: 20240109
  Serious: Yes (Death, Hospitalization, Other)
  Sender: FDA-Public Use
  Company Number: DE-002147023-NVSC2019DE073678

PATIENT
  Sex: Female
  Weight: 61 kg

DRUGS (14)
  1. LETROZOLE [Suspect]
     Active Substance: LETROZOLE
     Indication: Breast cancer metastatic
     Dosage: 2.5 MILLIGRAM, ONCE A DAY (2.5 MG, QD)
     Route: 048
     Dates: start: 20180708
  2. FULVESTRANT [Suspect]
     Active Substance: FULVESTRANT
     Indication: Breast cancer
     Dosage: 250 MILLIGRAM (250 MG EVERY 2 WEEKS)
     Route: 030
     Dates: start: 20210104, end: 20210131
  3. FULVESTRANT [Suspect]
     Active Substance: FULVESTRANT
     Indication: Breast cancer metastatic
     Dosage: 500 MILLIGRAM (500 MG  EVERY 2 WEEKS)
     Route: 030
     Dates: start: 20210201, end: 20210228
  4. FULVESTRANT [Suspect]
     Active Substance: FULVESTRANT
     Dosage: 500 MILLIGRAM (500 MG EVERY 4 WEEKS)
     Route: 030
     Dates: start: 20210301, end: 20220620
  5. FULVESTRANT [Suspect]
     Active Substance: FULVESTRANT
     Dosage: 500 MILLIGRAM (500 MG EVERY 4 WEEKS)
     Route: 030
     Dates: start: 20220718
  6. KISQALI [Suspect]
     Active Substance: RIBOCICLIB
     Indication: Breast cancer metastatic
     Dosage: 600 MILLIGRAM, SCHEMA 21 DAYS INTAKE THAN 7 DAYS PAUSE
     Route: 048
     Dates: start: 20180801, end: 20180817
  7. KISQALI [Suspect]
     Active Substance: RIBOCICLIB
     Dosage: 400 MILLIGRAM, SCHEMA 21 DAYS INTAKE THAN 7 DAYS PAUSE
     Route: 048
     Dates: start: 20180818, end: 20191014
  8. KISQALI [Suspect]
     Active Substance: RIBOCICLIB
     Dosage: 400 MILLIGRAM, ONCE A DAY, SCHEMA 21 DAYS INTAKE THAN 7 DAYS PAUSE
     Route: 048
     Dates: start: 20191016, end: 20191020
  9. KISQALI [Suspect]
     Active Substance: RIBOCICLIB
     Dosage: 400 MILLIGRAM, ONCE A DAY, SCHEMA 21 DAYS INTAKE THAN 7 DAYS PAUSE
     Route: 048
     Dates: start: 20191025, end: 20191118
  10. KISQALI [Suspect]
     Active Substance: RIBOCICLIB
     Dosage: 400 MILLIGRAM, ONCE A DAY, SCHEMA 21 DAYS INTAKE THAN 7 DAYS PAUSE
     Route: 048
     Dates: start: 20191219, end: 20200815
  11. KISQALI [Suspect]
     Active Substance: RIBOCICLIB
     Dosage: 200 MILLIGRAM (200 MG SCHEME 21 DAYS INTAKE, 7 DAYS PAUSE)
     Route: 048
     Dates: start: 20200816, end: 20200907
  12. KISQALI [Suspect]
     Active Substance: RIBOCICLIB
     Dosage: 400 MG SCHEME 21 DAYS INTAKE, 7 DAYS PAUSE
     Route: 048
     Dates: start: 20200908, end: 20201227
  13. KISQALI [Suspect]
     Active Substance: RIBOCICLIB
     Dosage: 400 MILLIGRAM (400 MG SCHEME 21 DAYS INTAKE, 7 DAYS PAUSE)
     Route: 048
     Dates: start: 20210104, end: 20210620
  14. KISQALI [Suspect]
     Active Substance: RIBOCICLIB
     Dosage: 400 MILLIGRAM (400 MG SCHEME 21 DAYS INTAKE, 7 DAYS PAUSE)
     Route: 048
     Dates: start: 20220621

REACTIONS (15)
  - Delirium [Fatal]
  - Stenosis [Recovering/Resolving]
  - COVID-19 [Recovering/Resolving]
  - Helicobacter infection [Recovered/Resolved]
  - Duodenal ulcer [Recovered/Resolved]
  - Dementia [Not Recovered/Not Resolved]
  - Nausea [Recovered/Resolved]
  - Vomiting [Recovered/Resolved]
  - Abdominal pain upper [Not Recovered/Not Resolved]
  - Haematoma [Recovered/Resolved]
  - Cough [Recovered/Resolved]
  - Memory impairment [Unknown]
  - Arthralgia [Not Recovered/Not Resolved]
  - Pyrexia [Unknown]
  - Neurological examination abnormal [Unknown]

NARRATIVE: CASE EVENT DATE: 20180701
